FAERS Safety Report 7580622-X (Version None)
Quarter: 2011Q2

REPORT INFORMATION
  Report Type: 
  Country: None (occurrence: None)
  Receive Date: 20110629
  Receipt Date: 20110623
  Transmission Date: 20111010
  Serious: Yes (Death)
  Sender: FDA-Public Use
  Company Number: IL-GENZYME-CERZ-1002126

PATIENT
  Sex: Male
  Weight: 106 kg

DRUGS (1)
  1. CEREZYME [Suspect]
     Indication: GAUCHER'S DISEASE
     Dosage: 15 U/KG, Q2W
     Route: 042
     Dates: start: 20031229, end: 20070701

REACTIONS (1)
  - CARDIAC ARREST [None]
